FAERS Safety Report 23788316 (Version 1)
Quarter: 2024Q2

REPORT INFORMATION
  Report Type: Report from Study
  Country: US (occurrence: US)
  Receive Date: 20240426
  Receipt Date: 20240426
  Transmission Date: 20240716
  Serious: Yes (Other)
  Sender: FDA-Public Use
  Company Number: US-ABBVIE-22K-163-4453527-00

PATIENT
  Sex: Male

DRUGS (2)
  1. IMBRUVICA [Suspect]
     Active Substance: IBRUTINIB
     Indication: Chronic lymphocytic leukaemia
     Dosage: LAST DOSE ADMINISTRATION: 2022
     Route: 048
     Dates: start: 20220303
  2. IMBRUVICA [Suspect]
     Active Substance: IBRUTINIB
     Indication: Chronic lymphocytic leukaemia
     Dosage: DRUG START DATE: 2022
     Route: 048

REACTIONS (4)
  - Pelvic fracture [Unknown]
  - Diarrhoea [Unknown]
  - Joint injury [Unknown]
  - Fall [Unknown]
